FAERS Safety Report 15008088 (Version 1)
Quarter: 2018Q2

REPORT INFORMATION
  Report Type: Report from Study
  Country: JM (occurrence: JM)
  Receive Date: 20180613
  Receipt Date: 20180613
  Transmission Date: 20180711
  Serious: Yes (Death, Hospitalization)
  Sender: FDA-Public Use
  Company Number: PHHY2018JM019610

PATIENT
  Age: 31 Year
  Sex: Male
  Weight: 66 kg

DRUGS (3)
  1. GLIVEC [Suspect]
     Active Substance: IMATINIB MESYLATE
     Indication: CHRONIC MYELOID LEUKAEMIA
     Dosage: 800 MG, UNK
     Route: 065
  2. GLIVEC [Suspect]
     Active Substance: IMATINIB MESYLATE
     Dosage: 400 MG, QD
     Route: 065
     Dates: start: 20180513, end: 20180516
  3. GLIVEC [Suspect]
     Active Substance: IMATINIB MESYLATE
     Dosage: 400 MG, QD
     Route: 065
     Dates: start: 20180524, end: 20180606

REACTIONS (25)
  - Pericardial effusion [Unknown]
  - Thrombocytopenia [Unknown]
  - Mucosal discolouration [Unknown]
  - Tumour lysis syndrome [Unknown]
  - Respiratory distress [Fatal]
  - Anaemia [Unknown]
  - Hepatic function abnormal [Unknown]
  - Liver function test abnormal [Unknown]
  - Hepatomegaly [Unknown]
  - Acute kidney injury [Unknown]
  - Bipolar disorder [Unknown]
  - Psychotic disorder [Unknown]
  - Splenomegaly [Unknown]
  - Decubitus ulcer [Unknown]
  - Sepsis [Fatal]
  - Blast crisis in myelogenous leukaemia [Fatal]
  - Pyrexia [Unknown]
  - Cytopenia [Unknown]
  - Lower respiratory tract infection [Fatal]
  - Rales [Fatal]
  - Lung infiltration [Fatal]
  - Lethargy [Unknown]
  - Tachycardia [Unknown]
  - Hyperkalaemia [Unknown]
  - Upper gastrointestinal haemorrhage [Unknown]

NARRATIVE: CASE EVENT DATE: 20180522
